FAERS Safety Report 6305391-2 (Version None)
Quarter: 2009Q3

REPORT INFORMATION
  Report Type: 
  Country: None (occurrence: None)
  Receive Date: 20090807
  Receipt Date: 20090724
  Transmission Date: 20100115
  Serious: Yes (Hospitalization)
  Sender: FDA-Public Use
  Company Number: 2009-02924

PATIENT
  Age: 64 Year
  Sex: Female
  Weight: 62 kg

DRUGS (3)
  1. VELCADE [Suspect]
     Indication: MULTIPLE MYELOMA
     Dosage: 1.3 MG/M2, INTRAVENOUS
     Route: 042
     Dates: start: 20090714
  2. MELPHALAN HYDROCHLORIDE [Suspect]
     Indication: MULTIPLE MYELOMA
     Dosage: 9 MG/M2, ORAL
     Route: 048
     Dates: start: 20090714
  3. DEXAMETHASONE TAB [Suspect]
     Indication: MULTIPLE MYELOMA
     Dosage: 40 MG/M2, ORAL
     Route: 048
     Dates: start: 20090714

REACTIONS (14)
  - ABDOMINAL PAIN [None]
  - BONE PAIN [None]
  - CHEST DISCOMFORT [None]
  - DECREASED APPETITE [None]
  - DIARRHOEA [None]
  - GAIT DISTURBANCE [None]
  - GASTROINTESTINAL SOUNDS ABNORMAL [None]
  - HEADACHE [None]
  - HEPATIC STEATOSIS [None]
  - NAUSEA [None]
  - PANCREAS LIPOMATOSIS [None]
  - TINNITUS [None]
  - VERTIGO POSITIONAL [None]
  - VOMITING [None]
